FAERS Safety Report 17291528 (Version 1)
Quarter: 2020Q1

REPORT INFORMATION
  Report Type: Report from Study
  Country: US (occurrence: US)
  Receive Date: 20200121
  Receipt Date: 20200121
  Transmission Date: 20200409
  Serious: Yes (Hospitalization, Other)
  Sender: FDA-Public Use
  Company Number: US-BAYER-2019-142405

PATIENT
  Age: 60 Year
  Sex: Male
  Weight: 102.04 kg

DRUGS (25)
  1. LYRICA [Concomitant]
     Active Substance: PREGABALIN
     Dosage: UNK
  2. FUROSEMIDE. [Concomitant]
     Active Substance: FUROSEMIDE
     Dosage: UNK
  3. HYDROCODONE/ACETAMINOPHEN [Concomitant]
     Active Substance: ACETAMINOPHEN\HYDROCODONE
     Dosage: UNK
  4. LANTUS [Concomitant]
     Active Substance: INSULIN GLARGINE
     Dosage: UNK
  5. UREA. [Concomitant]
     Active Substance: UREA
  6. NEXAVAR [Suspect]
     Active Substance: SORAFENIB
     Indication: HEPATOCELLULAR CARCINOMA
     Dosage: 200 MG, BID
     Route: 048
     Dates: start: 20190721, end: 2019
  7. SODIUM POLYSTYRENE SULFONATE. [Concomitant]
     Active Substance: SODIUM POLYSTYRENE SULFONATE
     Dosage: UNK
  8. VITAMIN D3 [Concomitant]
     Active Substance: CHOLECALCIFEROL
     Dosage: UNK
  9. ASPIRIN [ACETYLSALICYLIC ACID] [Concomitant]
     Active Substance: ASPIRIN
     Dosage: UNK
  10. PANTOPRAZOLE [Concomitant]
     Active Substance: PANTOPRAZOLE
     Dosage: UNK
  11. HYDROMORPHONE [Concomitant]
     Active Substance: HYDROMORPHONE
     Dosage: UNK
  12. PREGABALIN. [Concomitant]
     Active Substance: PREGABALIN
  13. ZEPATIER [Concomitant]
     Active Substance: ELBASVIR\GRAZOPREVIR
     Dosage: UNK
  14. URSODIOL. [Concomitant]
     Active Substance: URSODIOL
     Dosage: UNK
  15. NEXAVAR [Suspect]
     Active Substance: SORAFENIB
     Indication: HEPATOCELLULAR CARCINOMA
     Dosage: 200 MG, BID
     Route: 048
     Dates: start: 2019
  16. NEXAVAR [Suspect]
     Active Substance: SORAFENIB
     Indication: HEPATOCELLULAR CARCINOMA
     Dosage: 200 MG, BID
     Route: 048
     Dates: start: 2019
  17. NEPHRO-VITE [ASCORBIC ACID;BIOTIN;CYANOCOBALAMIN;FOLIC ACID;NICOTI [Concomitant]
     Dosage: UNK
  18. TACROLIMUS. [Concomitant]
     Active Substance: TACROLIMUS
     Dosage: UNK
  19. PROGRAF [Concomitant]
     Active Substance: TACROLIMUS
     Dosage: UNK
  20. LEVOTHYROXINE. [Concomitant]
     Active Substance: LEVOTHYROXINE
     Dosage: UNK
  21. AMOXICILLIN. [Concomitant]
     Active Substance: AMOXICILLIN
     Dosage: UNK
  22. HUMALOG [Concomitant]
     Active Substance: INSULIN LISPRO
     Dosage: UNK
  23. AMLODIPINE [Concomitant]
     Active Substance: AMLODIPINE BESYLATE
     Dosage: UNK
  24. ONDANSETRON [Concomitant]
     Active Substance: ONDANSETRON
     Dosage: UNK
  25. SODIUM POLYSTYRENE SULFONATE. [Concomitant]
     Active Substance: SODIUM POLYSTYRENE SULFONATE

REACTIONS (20)
  - Dehydration [Unknown]
  - Skin disorder [None]
  - Hyperhidrosis [None]
  - Palmoplantar keratoderma [Unknown]
  - Diarrhoea [Unknown]
  - Rash [Unknown]
  - Vomiting [Unknown]
  - Pain in extremity [Unknown]
  - Neuropathy peripheral [None]
  - Pyrexia [Unknown]
  - Nausea [Unknown]
  - Off label use [None]
  - Palmoplantar keratoderma [None]
  - Flushing [None]
  - Alopecia [None]
  - Infection [Unknown]
  - Fatigue [Unknown]
  - Acne [None]
  - Injection site discolouration [None]
  - Acne [Unknown]

NARRATIVE: CASE EVENT DATE: 201907
